FAERS Safety Report 16398779 (Version 1)
Quarter: 2019Q2

REPORT INFORMATION
  Report Type: Spontaneous
  Country: CA (occurrence: CA)
  Receive Date: 20190606
  Receipt Date: 20190606
  Transmission Date: 20190711
  Serious: Yes (Hospitalization, Other)
  Sender: FDA-Public Use
  Company Number: CA-TEVA-2019-CA-1059857

PATIENT
  Age: 44 Year
  Sex: Male

DRUGS (13)
  1. TACROLIMUS. [Suspect]
     Active Substance: TACROLIMUS
     Indication: TRANSPLANT
     Route: 065
  2. MYCOPHENOLATE MOFETIL. [Suspect]
     Active Substance: MYCOPHENOLATE MOFETIL
     Dosage: 2 GRAM DAILY;
     Route: 065
  3. SIROLIMUS. [Suspect]
     Active Substance: SIROLIMUS
     Indication: TRANSPLANT
     Route: 065
  4. SIROLIMUS. [Suspect]
     Active Substance: SIROLIMUS
     Indication: IMMUNOSUPPRESSION
     Route: 065
  5. MYCOPHENOLATE MOFETIL. [Suspect]
     Active Substance: MYCOPHENOLATE MOFETIL
     Dosage: 2 GRAM DAILY;
     Route: 065
  6. ANAKINRA [Suspect]
     Active Substance: ANAKINRA
     Indication: TRANSPLANT
     Route: 065
  7. ANAKINRA [Suspect]
     Active Substance: ANAKINRA
     Indication: IMMUNOSUPPRESSION
     Route: 065
  8. ENBREL [Suspect]
     Active Substance: ETANERCEPT
     Indication: IMMUNOSUPPRESSION
     Route: 065
  9. ENBREL [Suspect]
     Active Substance: ETANERCEPT
     Indication: TRANSPLANT
     Route: 065
  10. RAPAMUNE [Suspect]
     Active Substance: SIROLIMUS
     Indication: PRODUCT USED FOR UNKNOWN INDICATION
     Route: 065
  11. MYCOPHENOLATE MOFETIL. [Suspect]
     Active Substance: MYCOPHENOLATE MOFETIL
     Dosage: 2 GRAM DAILY;
     Route: 065
  12. TACROLIMUS. [Suspect]
     Active Substance: TACROLIMUS
     Indication: IMMUNOSUPPRESSION
     Route: 065
  13. ALEMTUZUMAB [Suspect]
     Active Substance: ALEMTUZUMAB
     Indication: IMMUNOSUPPRESSION
     Route: 042

REACTIONS (19)
  - Stem cell transplant [Recovered/Resolved]
  - Abdominal pain [Recovered/Resolved]
  - Gait disturbance [Recovered/Resolved]
  - Meningitis viral [Recovered/Resolved]
  - Acute kidney injury [Recovered/Resolved]
  - Diarrhoea haemorrhagic [Recovered/Resolved]
  - Diplopia [Recovered/Resolved]
  - Headache [Recovered/Resolved]
  - Product use in unapproved indication [Recovered/Resolved]
  - Propionibacterium infection [Recovered/Resolved]
  - Transplant failure [Recovered/Resolved]
  - Vertigo [Recovered/Resolved]
  - Febrile neutropenia [Recovered/Resolved]
  - Post transplant lymphoproliferative disorder [Recovered/Resolved]
  - Sepsis [Recovered/Resolved]
  - Central nervous system lymphoma [Recovered/Resolved]
  - Diffuse large B-cell lymphoma [Recovered/Resolved]
  - Enteritis [Recovered/Resolved]
  - Weight decreased [Recovered/Resolved]
